FAERS Safety Report 6885587-1 (Version None)
Quarter: 2010Q3

REPORT INFORMATION
  Report Type: 
  Country: None (occurrence: None)
  Receive Date: 20100729
  Receipt Date: 20080620
  Transmission Date: 20110219
  Serious: Yes (Other)
  Sender: FDA-Public Use
  Company Number: US-PFIZER INC-2008051912

PATIENT
  Sex: Male
  Weight: 73 kg

DRUGS (3)
  1. CELEBREX [Suspect]
     Indication: SPINAL CORD INJURY
     Route: 048
     Dates: start: 20080201, end: 20080620
  2. CELEBREX [Suspect]
     Indication: NECK INJURY
  3. HYDROCODONE BITARTRATE [Concomitant]
     Route: 048

REACTIONS (3)
  - ASTHENIA [None]
  - HEAT EXHAUSTION [None]
  - INSOMNIA [None]
